FAERS Safety Report 8135116-X (Version None)
Quarter: 2012Q1

REPORT INFORMATION
  Report Type: 
  Country: None (occurrence: None)
  Receive Date: 20120214
  Receipt Date: 20120206
  Transmission Date: 20120608
  Serious: Yes (Hospitalization)
  Sender: FDA-Public Use
  Company Number: US-BAYER-2011-100427

PATIENT
  Age: 28 Year
  Sex: Female
  Weight: 142.86 kg

DRUGS (13)
  1. IBUPROFEN [Concomitant]
     Dosage: UNK
     Route: 048
     Dates: start: 19950101
  2. LAMICTAL [Concomitant]
     Dosage: 200 MG, UNK
     Route: 048
     Dates: start: 20100120
  3. NAPROXEN [Concomitant]
     Dosage: UNK
     Route: 048
     Dates: start: 19950101
  4. YAZ [Suspect]
     Indication: ACNE
     Dosage: UNK
     Dates: start: 20090701, end: 20100101
  5. YAZ [Suspect]
     Indication: CONTRACEPTION
  6. YAZ [Suspect]
     Indication: PREMENSTRUAL SYNDROME
  7. MIRTAZAPINE [Concomitant]
     Indication: DEPRESSION
     Dosage: 15 MG, UNK
     Route: 048
     Dates: start: 20100113
  8. METFORMIN HCL [Concomitant]
     Dosage: UNK
     Dates: start: 20100101
  9. PERCOCET [Concomitant]
  10. PENICILLIN [Concomitant]
     Dosage: UNK
     Route: 048
     Dates: start: 19930101
  11. GEODON [Concomitant]
     Indication: BIPOLAR DISORDER
     Dosage: 80 MG, UNK
     Route: 048
     Dates: start: 20100112
  12. HYDROCODONE [Concomitant]
     Indication: PAIN
     Dosage: 500 MG, UNK
     Route: 048
     Dates: start: 20100112
  13. MULTI-VITAMIN [Concomitant]

REACTIONS (4)
  - PULMONARY EMBOLISM [None]
  - CHEST PAIN [None]
  - PAIN [None]
  - INJURY [None]
